FAERS Safety Report 20945439 (Version 1)
Quarter: 2022Q2

REPORT INFORMATION
  Report Type: Spontaneous
  Country: None (occurrence: DE)
  Receive Date: 20220610
  Receipt Date: 20220610
  Transmission Date: 20220720
  Serious: Yes (Death, Other)
  Sender: FDA-Public Use
  Company Number: DE-B.Braun Medical Inc.-2129709

PATIENT
  Age: 76 Year
  Sex: Female
  Weight: 57 kg

DRUGS (21)
  1. CEFEPIME HYDROCHLORIDE AND DEXTROSE [Suspect]
     Active Substance: CEFEPIME HYDROCHLORIDE
  2. PANTOPRAZOLE SODIUM [Concomitant]
     Active Substance: PANTOPRAZOLE SODIUM
  3. KARDEGIC [Suspect]
     Active Substance: ASPIRIN DL-LYSINE
  4. VERAPAMIL HYDROCHLORIDE [Suspect]
     Active Substance: VERAPAMIL HYDROCHLORIDE
  5. RILMENIDINE PHOSPHATE [Suspect]
     Active Substance: RILMENIDINE PHOSPHATE
  6. CALCIUM CARBONATE [Suspect]
     Active Substance: CALCIUM CARBONATE
  7. CRESTOR [Concomitant]
     Active Substance: ROSUVASTATIN CALCIUM
  8. PREDNISONE [Suspect]
     Active Substance: PREDNISONE
  9. MIDAZOLAM [Suspect]
     Active Substance: MIDAZOLAM
  10. CISATRACURIUM [Suspect]
     Active Substance: CISATRACURIUM
  11. LOVENOX [Suspect]
     Active Substance: ENOXAPARIN SODIUM
  12. FUROSEMIDE [Suspect]
     Active Substance: FUROSEMIDE
  13. BACTRIM [Suspect]
     Active Substance: SULFAMETHOXAZOLE\TRIMETHOPRIM
  14. URAPIDIL [Suspect]
     Active Substance: URAPIDIL
  15. AVIBACTAM SODIUM\CEFTAZIDIME [Suspect]
     Active Substance: AVIBACTAM SODIUM\CEFTAZIDIME
  16. MEROPENEM [Suspect]
     Active Substance: MEROPENEM
  17. VORICONAZOLE [Suspect]
     Active Substance: VORICONAZOLE
  18. DEXAMETHASONE [Suspect]
     Active Substance: DEXAMETHASONE
  19. HEPARIN SODIUM [Suspect]
     Active Substance: HEPARIN SODIUM
  20. VALACYCLOVIR HYDROCHLORIDE [Suspect]
     Active Substance: VALACYCLOVIR HYDROCHLORIDE
  21. SUFENTANIL CITRATE [Suspect]
     Active Substance: SUFENTANIL CITRATE

REACTIONS (5)
  - Encephalopathy [None]
  - Multiple organ dysfunction syndrome [None]
  - Mixed liver injury [None]
  - Myoclonus [None]
  - Off label use [None]
